FAERS Safety Report 6685838-2 (Version None)
Quarter: 2010Q2

REPORT INFORMATION
  Report Type: 
  Country: None (occurrence: None)
  Receive Date: 20100415
  Receipt Date: 20100415
  Transmission Date: 20101027
  Serious: Yes (Hospitalization)
  Sender: FDA-Public Use
  Company Number: None

PATIENT
  Sex: Female
  Weight: 49 kg

DRUGS (1)
  1. BEVACIZUMAB (RHUMAB VEGF) [Suspect]
     Dosage: 750 MG
     Dates: end: 20100318

REACTIONS (5)
  - CULTURE WOUND POSITIVE [None]
  - DIARRHOEA [None]
  - FATIGUE [None]
  - PYREXIA [None]
  - RETROPERITONEAL ABSCESS [None]
